FAERS Safety Report 13720103 (Version 1)
Quarter: 2017Q3

REPORT INFORMATION
  Report Type: Spontaneous
  Country: FR (occurrence: FR)
  Receive Date: 20170706
  Receipt Date: 20170706
  Transmission Date: 20171127
  Serious: Yes (Hospitalization, Other)
  Sender: FDA-Public Use
  Company Number: FR-BAXTER-2017BAX026479

PATIENT
  Age: 44 Year
  Sex: Male

DRUGS (16)
  1. HYPERIUM [Suspect]
     Active Substance: RILMENIDINE PHOSPHATE
     Indication: ADVERSE EVENT
     Route: 065
     Dates: start: 201703
  2. TAREG [Suspect]
     Active Substance: VALSARTAN
     Indication: ADVERSE EVENT
     Route: 065
     Dates: start: 201703
  3. CELLTOP 100 MG/5 ML, SOLUTION INJECTABLE POUR PERFUSION [Suspect]
     Active Substance: ETOPOSIDE
     Indication: PRODUCT USED FOR UNKNOWN INDICATION
     Dosage: DOSAGE FORM: INJECTION PROTOCOL TAXIF III, FIRST INTENSIFICATION
     Route: 042
     Dates: start: 20170203, end: 20170207
  4. RAMIPRIL. [Suspect]
     Active Substance: RAMIPRIL
     Indication: ADVERSE EVENT
     Route: 065
     Dates: start: 201703
  5. CELLTOP 100 MG/5 ML, SOLUTION INJECTABLE POUR PERFUSION [Suspect]
     Active Substance: ETOPOSIDE
     Dosage: DOSAGE FORM: INJECTION, SECOND INTENSIFICATION COURSE
     Route: 042
     Dates: start: 20170308, end: 20170311
  6. PACLITAXEL. [Suspect]
     Active Substance: PACLITAXEL
     Indication: PRODUCT USED FOR UNKNOWN INDICATION
     Route: 065
     Dates: start: 201611
  7. HOLOXAN 2000 MG, POUDRE POUR USAGE PARENT?RAL [Suspect]
     Active Substance: IFOSFAMIDE
     Indication: PRODUCT USED FOR UNKNOWN INDICATION
     Dosage: PROTOCOL TAXIF III, FIRST INTENSIFICATION
     Route: 042
     Dates: start: 20170203, end: 20170207
  8. AVASTIN [Suspect]
     Active Substance: BEVACIZUMAB
     Dosage: SECOND INTENSIFICATION COURSE
     Route: 042
     Dates: start: 20170307, end: 20170307
  9. CARBOPLATINE [Suspect]
     Active Substance: CARBOPLATIN
     Indication: PRODUCT USED FOR UNKNOWN INDICATION
     Dosage: DOSAGE FORM: INJECTION, PROTOCOL TAXIF III, FIRST INTENSIFICATION
     Route: 042
     Dates: start: 20170203, end: 20170207
  10. LOXEN [Suspect]
     Active Substance: NICARDIPINE HYDROCHLORIDE
     Indication: ADVERSE EVENT
     Route: 065
     Dates: start: 201703
  11. HOLOXAN 2000 MG, POUDRE POUR USAGE PARENT?RAL [Suspect]
     Active Substance: IFOSFAMIDE
     Dosage: SECOND INTENSIFICATION COURSE
     Route: 042
     Dates: start: 20170308, end: 20170311
  12. EPIRUBICINE [Suspect]
     Active Substance: EPIRUBICIN
     Indication: PRODUCT USED FOR UNKNOWN INDICATION
     Route: 065
     Dates: start: 201611
  13. BISOPROLOL [Suspect]
     Active Substance: BISOPROLOL
     Indication: ADVERSE EVENT
     Route: 065
     Dates: start: 201703
  14. AVASTIN [Suspect]
     Active Substance: BEVACIZUMAB
     Indication: PRODUCT USED FOR UNKNOWN INDICATION
     Dosage: PROTOCOL TAXIF III, FIRST INTENSIFICATION
     Route: 042
     Dates: start: 20170202, end: 20170202
  15. CARBOPLATINE [Suspect]
     Active Substance: CARBOPLATIN
     Dosage: SECOND INTENSIFICATION COURSE
     Route: 042
     Dates: start: 20170308, end: 20170311
  16. EUPRESSYL [Suspect]
     Active Substance: URAPIDIL
     Indication: ADVERSE EVENT
     Route: 065
     Dates: start: 201703

REACTIONS (5)
  - Hypertension [Unknown]
  - Brain herniation [Recovering/Resolving]
  - Carotid artery stenosis [Unknown]
  - Cerebral haematoma [Unknown]
  - Posterior reversible encephalopathy syndrome [Unknown]

NARRATIVE: CASE EVENT DATE: 20170322
